FAERS Safety Report 8161176-6 (Version None)
Quarter: 2012Q1

REPORT INFORMATION
  Report Type: 
  Country: None (occurrence: None)
  Receive Date: 20120103
  Receipt Date: 20111116
  Transmission Date: 20120608
  Serious: No
  Sender: FDA-Public Use
  Company Number: AE-2011-003541

PATIENT
  Age: 55 Year
  Sex: Male
  Weight: 95.2554 kg

DRUGS (5)
  1. COPEGUS [Concomitant]
  2. PEGASYS [Concomitant]
  3. INCIVEK [Suspect]
     Dosage: 2250 MG (750 MG, 3 IN 1 D), ORAL
     Route: 048
     Dates: start: 20111001, end: 20111103
  4. LEVOTHYROXINE SODIUM [Concomitant]
  5. FELODIPINE [Concomitant]

REACTIONS (4)
  - VISION BLURRED [None]
  - PRURITUS [None]
  - DYSPNOEA [None]
  - VISUAL IMPAIRMENT [None]
